FAERS Safety Report 8521729-X (Version None)
Quarter: 2012Q3

REPORT INFORMATION
  Report Type: 
  Country: None (occurrence: None)
  Receive Date: 20120719
  Receipt Date: 20120716
  Transmission Date: 20120928
  Serious: Yes (Death)
  Sender: FDA-Public Use
  Company Number: PHHY2012ES061148

PATIENT

DRUGS (6)
  1. ISONIAZID [Suspect]
     Indication: DISSEMINATED TUBERCULOSIS
  2. CYCLOSPORINE [Concomitant]
     Indication: STEM CELL TRANSPLANT
  3. RIFAMPICIN [Suspect]
     Indication: DISSEMINATED TUBERCULOSIS
  4. MYCOPHENOLIC ACID [Concomitant]
     Indication: STEM CELL TRANSPLANT
  5. PYRAZINAMIDE [Suspect]
     Indication: DISSEMINATED TUBERCULOSIS
  6. ETHAMBUTOL HYDROCHLORIDE [Suspect]
     Indication: DISSEMINATED TUBERCULOSIS

REACTIONS (3)
  - DRUG-INDUCED LIVER INJURY [None]
  - TRANSAMINASES INCREASED [None]
  - DISSEMINATED TUBERCULOSIS [None]
